FAERS Safety Report 9276179 (Version 1)
Quarter: 2013Q2

REPORT INFORMATION
  Report Type: Spontaneous
  Country: ES (occurrence: ES)
  Receive Date: 20130507
  Receipt Date: 20130507
  Transmission Date: 20140414
  Serious: Yes (Other)
  Sender: FDA-Public Use
  Company Number: ES-FRI-1000044976

PATIENT
  Age: 83 Year
  Sex: Male

DRUGS (1)
  1. ACLIDINIUM BROMIDE [Suspect]
     Indication: CHRONIC OBSTRUCTIVE PULMONARY DISEASE
     Dosage: 2 DF
     Route: 055
     Dates: start: 20130327, end: 20130411

REACTIONS (2)
  - Stomatitis [Recovering/Resolving]
  - Lip oedema [Recovering/Resolving]
